FAERS Safety Report 16480289 (Version 2)
Quarter: 2019Q2

REPORT INFORMATION
  Report Type: Spontaneous
  Country: US (occurrence: US)
  Receive Date: 20190626
  Receipt Date: 20190627
  Transmission Date: 20190711
  Serious: No
  Sender: FDA-Public Use
  Company Number: US-PFIZER INC-2019271515

PATIENT
  Age: 52 Year
  Sex: Female
  Weight: 83.91 kg

DRUGS (3)
  1. EFFEXOR XR [Suspect]
     Active Substance: VENLAFAXINE HYDROCHLORIDE
     Dosage: 300 MG, DAILY (ONE 150MG CAPSULE IN THE MORNING AND TWO 75MG CAPSULES AT NIGHT)
     Route: 048
  2. EFFEXOR XR [Suspect]
     Active Substance: VENLAFAXINE HYDROCHLORIDE
     Indication: DEPRESSION
     Dosage: 200 MG, DAILY (ONE 50 MG CAPSULE IN THE MORNING AND TWO 75 MG CAPSULES IN THE EVENING)
     Route: 048
     Dates: start: 2004
  3. EFFEXOR XR [Suspect]
     Active Substance: VENLAFAXINE HYDROCHLORIDE
     Indication: BIPOLAR I DISORDER
     Dosage: 225 MG, DAILY (150 MG THEN 75 MG AT NIGHT)
     Route: 048

REACTIONS (5)
  - Prescribed overdose [Unknown]
  - Memory impairment [Unknown]
  - Sedation [Unknown]
  - Somnolence [Unknown]
  - Drug ineffective [Unknown]
